FAERS Safety Report 7009802-9 (Version None)
Quarter: 2010Q3

REPORT INFORMATION
  Report Type: 
  Country: None (occurrence: None)
  Receive Date: 20100923
  Receipt Date: 20100913
  Transmission Date: 20110219
  Serious: Yes (Hospitalization, Other)
  Sender: FDA-Public Use
  Company Number: FI-MPIJNJ-2010-04792

PATIENT

DRUGS (10)
  1. VELCADE [Suspect]
     Indication: MULTIPLE MYELOMA
     Dosage: UNK MG, UNK
     Route: 042
     Dates: start: 20100308
  2. VELCADE [Suspect]
     Dosage: 2 MG, UNK
     Dates: end: 20100615
  3. VELCADE [Suspect]
     Dosage: 2 MG, UNK
     Dates: start: 20100621
  4. DEXAMETHASONE [Suspect]
     Indication: MULTIPLE MYELOMA
     Dosage: 160 MG, UNK
     Dates: start: 20100308, end: 20100615
  5. DEXAMETHASONE [Suspect]
     Dosage: UNK
     Dates: start: 20100621
  6. ALLONOL [Concomitant]
     Indication: PROPHYLAXIS
     Dosage: 300 MG, UNK
     Route: 048
  7. CLODRONATE DISODIUM [Concomitant]
     Indication: PROPHYLAXIS
     Dosage: 1600 MG, UNK
     Route: 048
  8. ACYCLOVIR SODIUM [Concomitant]
     Indication: PROPHYLAXIS
     Dosage: 400 MG, UNK
     Route: 048
     Dates: start: 20100101
  9. FEMAR [Concomitant]
     Indication: BREAST CANCER
     Dosage: 2.5 MG, UNK
     Route: 048
     Dates: start: 20080501
  10. CALCICHEW D3 [Concomitant]
     Indication: PROPHYLAXIS
     Dosage: 2 DF, UNK
     Route: 048
     Dates: start: 20060601

REACTIONS (4)
  - ATRIAL FIBRILLATION [None]
  - LEUKOPENIA [None]
  - NEUTROPENIA [None]
  - THROMBOCYTOPENIA [None]
